FAERS Safety Report 24174358 (Version 1)
Quarter: 2024Q3

REPORT INFORMATION
  Report Type: Spontaneous
  Country: US (occurrence: US)
  Receive Date: 20240805
  Receipt Date: 20240805
  Transmission Date: 20241016
  Serious: No
  Sender: SANOFI AVENTIS
  Company Number: US-SA-SAC20240731000908

PATIENT
  Age: 33 Year
  Sex: Female

DRUGS (4)
  1. TZIELD [Suspect]
     Active Substance: TEPLIZUMAB-MZWV
     Dosage: 115.05 UG, 1X
     Route: 042
     Dates: start: 20240726, end: 20240726
  2. TZIELD [Suspect]
     Active Substance: TEPLIZUMAB-MZWV
     Dosage: 221 UG, 1X
     Route: 042
     Dates: start: 20240727, end: 20240727
  3. TZIELD [Suspect]
     Active Substance: TEPLIZUMAB-MZWV
     Dosage: 442 UG, 1X
     Route: 042
     Dates: start: 20240728, end: 20240728
  4. IBUPROFEN [Concomitant]
     Active Substance: IBUPROFEN
     Indication: Antipyresis
     Dosage: UNK
     Dates: start: 20240726

REACTIONS (2)
  - Dyspepsia [Recovered/Resolved]
  - Fatigue [Recovered/Resolved]

NARRATIVE: CASE EVENT DATE: 20240727
